FAERS Safety Report 4801727-X (Version None)
Quarter: 2005Q3

REPORT INFORMATION
  Report Type: 
  Country: None (occurrence: None)
  Receive Date: 20050929
  Receipt Date: 20050718
  Transmission Date: 20060218
  Serious: Yes (Death)
  Sender: FDA-Public Use
  Company Number: 05P-163-0305976-00

PATIENT
  Age: 82 Year
  Sex: Male

DRUGS (9)
  1. HUMIRA [Suspect]
     Indication: RHEUMATOID ARTHRITIS
     Dosage: 40 MG, 1 IN 2 WK, SUBCUTANEOUS
     Route: 058
     Dates: start: 20050713, end: 20050713
  2. AMLODIPINE BESYLATE [Concomitant]
  3. PREDNISONE [Concomitant]
  4. RISEDRONATE SODIUM [Concomitant]
  5. DONEPEZIL HYDROCHLORIDE [Concomitant]
  6. METHOTREXATE [Concomitant]
  7. DEXTROPROPOXYPHENE HYDROCHLORIDE [Concomitant]
  8. IBUPROFEN [Concomitant]
  9. NAMENDA [Concomitant]

REACTIONS (1)
  - DEATH [None]
